FAERS Safety Report 15194910 (Version 2)
Quarter: 2018Q4

REPORT INFORMATION
  Report Type: Spontaneous
  Country: CH (occurrence: CH)
  Receive Date: 20180725
  Receipt Date: 20180820
  Transmission Date: 20190204
  Serious: Yes (Other)
  Sender: FDA-Public Use
  Company Number: CH-PFIZER INC-2018288750

PATIENT
  Age: 77 Year
  Sex: Male

DRUGS (29)
  1. KONAKION MM [Concomitant]
     Active Substance: PHYTONADIONE
     Dosage: UNK
     Dates: start: 20180701
  2. LUVIT D3 [Concomitant]
     Dosage: UNK
     Dates: start: 20180626, end: 20180628
  3. MOTILIUM [Concomitant]
     Active Substance: DOMPERIDONE
     Dosage: IN RESERVE
     Route: 060
     Dates: start: 20180620
  4. ECALTA [Suspect]
     Active Substance: ANIDULAFUNGIN
     Indication: SYSTEMIC CANDIDA
     Dosage: 200 MG, 1X/DAY
     Route: 042
     Dates: start: 20180701, end: 20180701
  5. TORASEMIDE [Concomitant]
     Active Substance: TORSEMIDE
     Dosage: UNK
  6. CRESTOR [Concomitant]
     Active Substance: ROSUVASTATIN CALCIUM
     Dosage: UNK
     Dates: end: 20180705
  7. DAFALGAN [Concomitant]
     Active Substance: ACETAMINOPHEN
     Dosage: IN RESERVE
  8. PIPERACILLIN/TAZOBACTAM [Suspect]
     Active Substance: PIPERACILLIN SODIUM\TAZOBACTAM SODIUM
     Dosage: 4.5G, 3X/DAY, BRAND UNKNOWN
     Route: 042
     Dates: start: 20180629, end: 20180704
  9. ZOLPIDEM [Suspect]
     Active Substance: ZOLPIDEM\ZOLPIDEM TARTRATE
     Dosage: 5 MG, 1X/DAY
     Route: 048
     Dates: start: 20180703, end: 20180704
  10. FLUCONAZOLE. [Suspect]
     Active Substance: FLUCONAZOLE
     Dosage: 300 MG, 1X/DAY
     Dates: start: 20180701, end: 20180701
  11. VIDAZA [Suspect]
     Active Substance: AZACITIDINE
     Dosage: UNK, 1X/MONTH
  12. NEXIUM [Suspect]
     Active Substance: ESOMEPRAZOLE MAGNESIUM
     Dosage: 40 MG, 1X/DAY
     Route: 048
     Dates: start: 20180621
  13. METRONIDAZOLE. [Suspect]
     Active Substance: METRONIDAZOLE
     Dosage: DOSAGE UNKNOWN, BRAND UNKNOWN
     Dates: start: 20180610, end: 20180624
  14. LASIX [Concomitant]
     Active Substance: FUROSEMIDE
     Dosage: UNK
  15. ASPIRIN CARDIO [Concomitant]
     Active Substance: ASPIRIN
     Dosage: UNK
  16. TEMESTA /00273201/ [Concomitant]
     Active Substance: LORAZEPAM
     Dosage: UNK
     Dates: start: 20180704
  17. CIRCADIN [Concomitant]
     Active Substance: MELATONIN
     Dosage: UNK
     Dates: start: 20180622, end: 20180702
  18. FUNGIZONE [Concomitant]
     Active Substance: AMPHOTERICIN B
     Dosage: UNK
     Dates: start: 20180705
  19. FLUCONAZOLE. [Suspect]
     Active Substance: FLUCONAZOLE
     Indication: FUNGAL INFECTION
     Dosage: 400MG, 1X/DAY, BRAND UNKNOWN
     Route: 048
     Dates: start: 20180630, end: 20180630
  20. VIDAZA [Suspect]
     Active Substance: AZACITIDINE
     Dosage: UNK, 2X/DAY
     Route: 042
     Dates: start: 20180604, end: 20180608
  21. CLEXANE [Suspect]
     Active Substance: ENOXAPARIN SODIUM
     Dosage: 40 MG, 1X/DAY
     Route: 058
     Dates: start: 20180627
  22. ZOLPIDEM [Suspect]
     Active Substance: ZOLPIDEM\ZOLPIDEM TARTRATE
     Dosage: 10MG, 1X/DAY, BRAND UNKNOWN
     Route: 048
     Dates: start: 20180702, end: 20180703
  23. AMLODIPINE [Concomitant]
     Active Substance: AMLODIPINE BESYLATE
     Indication: BLOOD PRESSURE SYSTOLIC INCREASED
     Dosage: IN RESERVE
  24. CEFEPIME [Suspect]
     Active Substance: CEFEPIME HYDROCHLORIDE
     Dosage: DOSAGE UNKNOWN, BRAND UNKNOWN
     Dates: start: 20180610, end: 20180624
  25. METOLAZONE. [Concomitant]
     Active Substance: METOLAZONE
     Dosage: UNK
     Dates: start: 20180704
  26. BELOC ZOK [Concomitant]
     Active Substance: METOPROLOL SUCCINATE
     Dosage: UNK
  27. ECALTA [Suspect]
     Active Substance: ANIDULAFUNGIN
     Dosage: 100 MG, 1X/DAY
     Route: 042
     Dates: start: 20180702, end: 20180705
  28. DISTRANEURIN /00027501/ [Suspect]
     Active Substance: CLOMETHIAZOLE
     Dosage: 192 MG, 1X/DAY
     Route: 048
     Dates: start: 20180620
  29. COSAAR [Concomitant]
     Active Substance: LOSARTAN POTASSIUM
     Dosage: UNK

REACTIONS (1)
  - Hepatocellular injury [Not Recovered/Not Resolved]

NARRATIVE: CASE EVENT DATE: 20180705
